FAERS Safety Report 9552621 (Version 1)
Quarter: 2013Q3

REPORT INFORMATION
  Report Type: Spontaneous
  Country: US (occurrence: None)
  Receive Date: 20130924
  Receipt Date: 20130924
  Transmission Date: 20140515
  Serious: Yes (Life-Threatening, Other)
  Sender: FDA-Public Use
  Company Number: None

PATIENT
  Age: 81 Year
  Sex: Female
  Weight: 58.97 kg

DRUGS (1)
  1. MONTELUKAST [Suspect]
     Dosage: 10 MG  DARK GRAY  SQUARE
     Dates: start: 20130820

REACTIONS (2)
  - Dyspnoea [None]
  - Product substitution issue [None]
